FAERS Safety Report 7831281-X (Version None)
Quarter: 2011Q4

REPORT INFORMATION
  Report Type: 
  Country: None (occurrence: None)
  Receive Date: 20111021
  Receipt Date: 20111020
  Transmission Date: 20120403
  Serious: Yes (Other)
  Sender: FDA-Public Use
  Company Number: US-ROCHE-1005632

PATIENT
  Age: 47 Year
  Sex: Female

DRUGS (17)
  1. HERCEPTIN [Suspect]
     Dosage: 1 MORE CYCLE
     Dates: start: 20070801
  2. XELODA [Suspect]
     Dosage: 2 CYCLES
     Dates: start: 20090401
  3. ZOMETA [Suspect]
     Indication: METASTASES TO LUNG
     Dosage: 4 CYCLES+ 2 CYCLES
     Dates: start: 20110301
  4. LAPATINIB [Concomitant]
     Dates: start: 20070801
  5. ZOMETA [Suspect]
     Indication: METASTASES TO LIVER
  6. ZOMETA [Suspect]
     Indication: METASTASES TO BONE
  7. ABRAXANE [Suspect]
     Indication: METASTASES TO LUNG
     Dosage: 4 CYCLES+ 2 CYCLES
     Dates: start: 20110301
  8. ABRAXANE [Suspect]
     Indication: METASTASES TO BONE
  9. HERCEPTIN [Suspect]
     Indication: BREAST CANCER METASTATIC
     Dosage: 3 CYCLES
  10. XELODA [Suspect]
     Dosage: 2 CYCLES FINISHED ON 21 JULY 2009
  11. VINORELBINE [Concomitant]
     Indication: METASTASES TO LUNG
     Dosage: 6 CYCLES
     Dates: start: 20081201
  12. IXEMPRA KIT [Concomitant]
     Dosage: 2 CYCLES + 2 CYCLES
     Dates: start: 20090401, end: 20090721
  13. HERCEPTIN [Suspect]
     Dosage: 2 CYCLES
     Dates: start: 20090401
  14. HERCEPTIN [Suspect]
     Dosage: 6 CYCLES
     Dates: start: 20081201
  15. XELODA [Suspect]
     Indication: BREAST CANCER METASTATIC
     Dosage: 2 CYCLES
     Dates: start: 20081201
  16. ABRAXANE [Suspect]
     Indication: METASTASES TO LIVER
  17. IXEMPRA KIT [Concomitant]

REACTIONS (2)
  - EJECTION FRACTION DECREASED [None]
  - HYPOTENSION [None]
